FAERS Safety Report 11651840 (Version 1)
Quarter: 2015Q4

REPORT INFORMATION
  Report Type: Report from Study
  Country: US (occurrence: US)
  Receive Date: 20151022
  Receipt Date: 20151022
  Transmission Date: 20160304
  Serious: Yes (Death, Hospitalization, Other)
  Sender: FDA-Public Use
  Company Number: US-GILEAD-2015-0177794

PATIENT
  Age: 65 Year
  Sex: Female

DRUGS (10)
  1. SPIRONOLACTONE. [Concomitant]
     Active Substance: SPIRONOLACTONE
  2. VELETRI [Concomitant]
     Active Substance: EPOPROSTENOL
  3. OMEPRAZOLE. [Concomitant]
     Active Substance: OMEPRAZOLE
  4. CELLCEPT [Concomitant]
     Active Substance: MYCOPHENOLATE MOFETIL\MYCOPHENOLATE MOFETIL HYDROCHLORIDE
  5. REVATIO [Concomitant]
     Active Substance: SILDENAFIL CITRATE
  6. PROMACTA [Concomitant]
     Active Substance: ELTROMBOPAG OLAMINE
     Dosage: UNK
     Dates: start: 20150915
  7. FUROSEMIDE. [Concomitant]
     Active Substance: FUROSEMIDE
  8. SPIRIVA [Concomitant]
     Active Substance: TIOTROPIUM BROMIDE MONOHYDRATE
  9. KLOR-CON [Concomitant]
     Active Substance: POTASSIUM CHLORIDE
  10. AMBRISENTAN [Suspect]
     Active Substance: AMBRISENTAN
     Indication: CARDIAC SEPTAL DEFECT
     Dosage: 10 MG, QD
     Route: 048
     Dates: start: 201402

REACTIONS (6)
  - Thrombocytopenia [Unknown]
  - Disease progression [Fatal]
  - Bronchiectasis [Unknown]
  - Hypoxia [Unknown]
  - Right ventricular failure [Unknown]
  - Interstitial lung disease [Unknown]
